FAERS Safety Report 9001687 (Version 3)
Quarter: 2013Q1

REPORT INFORMATION
  Report Type: Spontaneous
  Country: US (occurrence: US)
  Receive Date: 20130107
  Receipt Date: 20130201
  Transmission Date: 20140127
  Serious: Yes (Other)
  Sender: FDA-Public Use
  Company Number: PHEH2013US000605

PATIENT
  Age: 36 None
  Sex: Female

DRUGS (5)
  1. GILENYA [Suspect]
     Indication: MULTIPLE SCLEROSIS
     Dosage: 0.5 MG, QD
     Route: 048
     Dates: start: 20121018, end: 20121209
  2. OXCARBAZEPINE [Concomitant]
     Indication: TONIC CONVULSION
     Dosage: 300 MG, BID
     Route: 048
     Dates: start: 20120116
  3. CLONAZEPAM [Concomitant]
     Indication: ANXIETY
     Dosage: 0.5 MG, BID
     Route: 048
     Dates: start: 20111014
  4. VIT D [Concomitant]
     Indication: VITAMIN D DEFICIENCY
     Dosage: 1.25 MG, QW
     Route: 048
  5. VIT C                              /06826201/ [Concomitant]
     Dosage: 500 MG, QD
     Route: 048

REACTIONS (2)
  - Abortion spontaneous [Unknown]
  - Exposure during pregnancy [Unknown]
